FAERS Safety Report 17093864 (Version 1)
Quarter: 2019Q4

REPORT INFORMATION
  Report Type: Spontaneous
  Country: US (occurrence: US)
  Receive Date: 20191129
  Receipt Date: 20191129
  Transmission Date: 20200122
  Serious: No
  Sender: FDA-Public Use
  Company Number: US-GLAXOSMITHKLINE-US2019GSK214186

PATIENT
  Age: 69 Year
  Sex: Female

DRUGS (2)
  1. ABREVA [Suspect]
     Active Substance: DOCOSANOL
     Dosage: 3 TIMES, UNK
     Dates: start: 20191124, end: 20191125
  2. ABREVA [Suspect]
     Active Substance: DOCOSANOL
     Indication: ORAL HERPES
     Dosage: 5 TIMES DAILY, UNK
     Dates: start: 20191124, end: 20191125

REACTIONS (3)
  - Condition aggravated [Unknown]
  - Inappropriate schedule of product administration [Unknown]
  - Oral herpes [Unknown]

NARRATIVE: CASE EVENT DATE: 20191124
